FAERS Safety Report 4660133-1 (Version None)
Quarter: 2005Q2

REPORT INFORMATION
  Report Type: 
  Country: None (occurrence: None)
  Receive Date: 20050510
  Receipt Date: 20050419
  Transmission Date: 20051028
  Serious: Yes (Other)
  Sender: FDA-Public Use
  Company Number: USA050496392

PATIENT
  Age: 29 Year
  Sex: Female

DRUGS (6)
  1. CYMBALTA [Suspect]
     Dosage: 60 MG
  2. ZITHROMAX [Concomitant]
  3. VICODIN [Concomitant]
  4. ADVIL [Concomitant]
  5. ZYRTEC [Concomitant]
  6. ALBUTEROL [Concomitant]

REACTIONS (5)
  - ANXIETY [None]
  - DIZZINESS [None]
  - HYPERVENTILATION [None]
  - LOSS OF CONSCIOUSNESS [None]
  - PANIC ATTACK [None]
